FAERS Safety Report 15492627 (Version 1)
Quarter: 2018Q4

REPORT INFORMATION
  Report Type: Report from Study
  Country: CO (occurrence: CO)
  Receive Date: 20181012
  Receipt Date: 20181012
  Transmission Date: 20190205
  Serious: No
  Sender: FDA-Public Use
  Company Number: CO-IPSEN BIOPHARMACEUTICALS, INC.-2018-04992

PATIENT
  Age: 78 Year
  Sex: Female

DRUGS (4)
  1. AFINITOR [Concomitant]
     Active Substance: EVEROLIMUS
  2. LOVASTATIN. [Concomitant]
     Active Substance: LOVASTATIN
  3. SOMATULINE [Suspect]
     Active Substance: LANREOTIDE ACETATE
     Indication: NEUROENDOCRINE TUMOUR
     Dosage: 120 MG
     Route: 058
     Dates: start: 20160518, end: 20180315
  4. PROPRANOLOL [Concomitant]
     Active Substance: PROPRANOLOL HYDROCHLORIDE

REACTIONS (3)
  - Tachycardia [Unknown]
  - Eye inflammation [Unknown]
  - Peripheral swelling [Unknown]
